FAERS Safety Report 17830090 (Version 2)
Quarter: 2020Q3

REPORT INFORMATION
  Report Type: Spontaneous
  Country: US (occurrence: US)
  Receive Date: 20200527
  Receipt Date: 20200903
  Transmission Date: 20201102
  Serious: Yes (Disabling, Other)
  Sender: FDA-Public Use
  Company Number: US-SA-2020SA133250

PATIENT

DRUGS (1)
  1. DULCOLAX PINK [Suspect]
     Active Substance: BISACODYL
     Indication: ILL-DEFINED DISORDER
     Dosage: 1 DF, QW

REACTIONS (2)
  - Off label use [Unknown]
  - Disability [Unknown]
